FAERS Safety Report 7728752-3 (Version None)
Quarter: 2011Q3

REPORT INFORMATION
  Report Type: 
  Country: None (occurrence: None)
  Receive Date: 20110906
  Receipt Date: 20110826
  Transmission Date: 20111222
  Serious: Yes (Hospitalization)
  Sender: FDA-Public Use
  Company Number: JP-JNJFOC-20110804599

PATIENT
  Sex: Female

DRUGS (18)
  1. CLARITHROMYCIN [Concomitant]
     Indication: PROPHYLAXIS
     Route: 048
  2. VOLTAREN [Concomitant]
     Indication: PYREXIA
     Route: 048
  3. GOLIMUMAB [Suspect]
     Route: 058
     Dates: start: 20081128, end: 20101126
  4. METHOTREXATE [Suspect]
     Indication: RHEUMATOID ARTHRITIS
     Route: 048
     Dates: start: 20110318
  5. ISODINE GARGLE [Concomitant]
     Indication: PROPHYLAXIS
     Route: 049
  6. LOXONIN [Concomitant]
     Indication: RHEUMATOID ARTHRITIS
     Route: 003
     Dates: start: 20081031
  7. ALENDRONATE SODIUM [Concomitant]
     Indication: OSTEOPOROSIS
     Route: 048
  8. ETODOLAC [Concomitant]
     Indication: RHEUMATOID ARTHRITIS
     Route: 048
     Dates: start: 20101029
  9. PRORENAL [Concomitant]
     Indication: INTERVERTEBRAL DISC PROTRUSION
     Route: 048
  10. NON-PYRINE COLD PREPARATION [Concomitant]
     Indication: OROPHARYNGEAL PAIN
     Route: 048
     Dates: start: 20110729, end: 20110731
  11. GOLIMUMAB [Suspect]
     Route: 058
     Dates: start: 20101224
  12. METHOTREXATE [Suspect]
     Route: 048
     Dates: start: 20081128
  13. FOLIC ACID [Concomitant]
     Indication: DRUG INTERACTION
     Route: 048
  14. MUCOSTA [Concomitant]
     Indication: GASTRITIS PROPHYLAXIS
     Route: 048
     Dates: start: 20101029
  15. VOLTAREN [Concomitant]
     Indication: INTERVERTEBRAL DISC PROTRUSION
     Route: 048
  16. NON-PYRINE COLD PREPARATION [Concomitant]
     Indication: PYREXIA
     Route: 048
     Dates: start: 20110729, end: 20110731
  17. GOLIMUMAB [Suspect]
     Indication: RHEUMATOID ARTHRITIS
     Route: 058
     Dates: start: 20110708
  18. METHOTREXATE [Suspect]
     Route: 048
     Dates: start: 20110610

REACTIONS (1)
  - PNEUMONIA [None]
